FAERS Safety Report 5509253-X (Version None)
Quarter: 2007Q4

REPORT INFORMATION
  Report Type: 
  Country: None (occurrence: None)
  Receive Date: 20071107
  Receipt Date: 20071018
  Transmission Date: 20080405
  Serious: No
  Sender: FDA-Public Use
  Company Number: US-BOEHRINGER INGELHEIM PHARMACEUTICALS, INC.-2007-BP-21838PF

PATIENT
  Age: 75 Year
  Sex: Male

DRUGS (19)
  1. SPIRIVA [Suspect]
     Indication: EMPHYSEMA
     Route: 055
  2. SPIRIVA [Suspect]
     Indication: CHRONIC OBSTRUCTIVE PULMONARY DISEASE
  3. NIFEDIPINE [Concomitant]
     Dates: start: 20070717
  4. FUROSEMIDE [Concomitant]
     Dates: start: 20070815
  5. GLYBURIDE [Concomitant]
     Dates: start: 20070414
  6. BISACODYL [Concomitant]
     Dates: start: 20070904
  7. METAMUCIL FIBER LAXATIVE [Concomitant]
     Dates: start: 20070508
  8. SERTRALINE [Concomitant]
     Dates: start: 20070501
  9. SIMVASTATIN [Concomitant]
     Dates: start: 20070906
  10. ENALAPRIL MAL [Concomitant]
     Dates: start: 20070317
  11. METFORMIN HCL [Concomitant]
     Dates: start: 20070508
  12. ADVAIR DISKUS 100/50 [Concomitant]
     Dates: start: 20061109
  13. NYSTATIN [Concomitant]
     Dates: start: 20061004
  14. OMEPRAZOLE [Concomitant]
     Dates: start: 20070806
  15. VITAMIN B6 [Concomitant]
     Dates: start: 20070924
  16. THERA-MILL [Concomitant]
     Dates: start: 20070317
  17. ASCORBIC ACID [Concomitant]
     Dates: start: 20070806
  18. SCOPE [Concomitant]
     Dates: start: 20060510
  19. CLINDAMYCIN HCL [Concomitant]
     Dates: start: 20070807

REACTIONS (1)
  - DIABETIC NEUROPATHY [None]
